FAERS Safety Report 17893522 (Version 5)
Quarter: 2020Q4

REPORT INFORMATION
  Report Type: Report from Study
  Country: None (occurrence: BR)
  Receive Date: 20200615
  Receipt Date: 20201207
  Transmission Date: 20210113
  Serious: Yes (Hospitalization, Other)
  Sender: FDA-Public Use
  Company Number: BR-ABBVIE-19K-020-3208362-00

PATIENT
  Sex: Female

DRUGS (2)
  1. HUMIRA [Suspect]
     Active Substance: ADALIMUMAB
     Indication: PSORIASIS
     Route: 058
  2. SKYRIZI [Concomitant]
     Active Substance: RISANKIZUMAB-RZAA
     Indication: PRODUCT USED FOR UNKNOWN INDICATION
     Dosage: APPLIED TWO DOSES WITH ONE MONTH OF DIFFERENCE AND AFTER EVERY THREE MONTHS.
     Route: 065
     Dates: start: 201912, end: 202004

REACTIONS (9)
  - Bacterial infection [Unknown]
  - Ear infection [Unknown]
  - Psoriasis [Unknown]
  - Immunodeficiency [Unknown]
  - Scab [Unknown]
  - Cellulitis [Unknown]
  - Bacterial infection [Recovered/Resolved]
  - Hypoacusis [Unknown]
  - Psoriasis [Recovered/Resolved]

NARRATIVE: CASE EVENT DATE: 2019
